FAERS Safety Report 12055352 (Version 11)
Quarter: 2017Q4

REPORT INFORMATION
  Report Type: Report from Study
  Country: CO (occurrence: CO)
  Receive Date: 20160209
  Receipt Date: 20171108
  Transmission Date: 20180320
  Serious: Yes (Hospitalization, Other)
  Sender: FDA-Public Use
  Company Number: PHHY2015CO094505

PATIENT
  Age: 7 Year
  Sex: Female
  Weight: 26 kg

DRUGS (5)
  1. EXJADE [Suspect]
     Active Substance: DEFERASIROX
     Dosage: 500 MG, 2 TABLETS A DAY ON TUESDAYS AND FRIDAYS, 1 TABLET A DAY ON THE OTHER DAY
     Route: 048
     Dates: start: 20170504
  2. FOLIC ACID. [Concomitant]
     Active Substance: FOLIC ACID
     Indication: PRODUCT USED FOR UNKNOWN INDICATION
     Dosage: 500 MG, QD
     Route: 065
     Dates: start: 2011
  3. HIDROXIUREA [Concomitant]
     Active Substance: HYDROXYUREA
     Indication: PRODUCT USED FOR UNKNOWN INDICATION
     Dosage: 500 MG, QD
     Route: 065
     Dates: start: 2011
  4. EXJADE [Suspect]
     Active Substance: DEFERASIROX
     Dosage: 30 MG/KG, QD (500 MG)
     Route: 048
  5. EXJADE [Suspect]
     Active Substance: DEFERASIROX
     Indication: SICKLE CELL ANAEMIA
     Dosage: 30 MG/KG, QD (500 MG)
     Route: 048
     Dates: start: 20110311

REACTIONS (18)
  - Haemolysis [Unknown]
  - Haemoglobin decreased [Unknown]
  - Serum ferritin increased [Unknown]
  - Sickle cell anaemia with crisis [Unknown]
  - Ultrasound Doppler abnormal [Unknown]
  - Inflammation [Unknown]
  - Pyrexia [Unknown]
  - Abdominal pain [Unknown]
  - Arthralgia [Unknown]
  - General physical health deterioration [Unknown]
  - Pneumonia [Unknown]
  - Respiratory tract infection [Unknown]
  - Oxygen saturation decreased [Unknown]
  - Blood iron increased [Unknown]
  - Back pain [Unknown]
  - Bacterial infection [Unknown]
  - Gait inability [Unknown]
  - Pain in extremity [Unknown]

NARRATIVE: CASE EVENT DATE: 20151218
